FAERS Safety Report 7515880-0 (Version None)
Quarter: 2011Q2

REPORT INFORMATION
  Report Type: 
  Country: None (occurrence: None)
  Receive Date: 20110601
  Receipt Date: 20110525
  Transmission Date: 20111010
  Serious: No
  Sender: FDA-Public Use
  Company Number: US-PFIZER INC-2011113972

PATIENT
  Sex: Female
  Weight: 62.585 kg

DRUGS (1)
  1. LATANOPROST [Suspect]
     Indication: GLAUCOMA
     Dosage: 2 GTT, 1X/DAY
     Route: 047
     Dates: start: 20110417, end: 20110522

REACTIONS (4)
  - EYE PRURITUS [None]
  - OCULAR HYPERAEMIA [None]
  - EYE IRRITATION [None]
  - EYE DISORDER [None]
